FAERS Safety Report 5175361-9 (Version None)
Quarter: 2006Q4

REPORT INFORMATION
  Report Type: 
  Country: None (occurrence: None)
  Receive Date: 20061211
  Receipt Date: 20061211
  Transmission Date: 20070319
  Serious: Yes (Other)
  Sender: FDA-Public Use
  Company Number: None

PATIENT
  Sex: Female
  Weight: 61.2356 kg

DRUGS (1)
  1. LIPITOR [Suspect]
     Indication: BLOOD CHOLESTEROL INCREASED
     Dosage: 10 MG ONCE DAILY PO
     Route: 048
     Dates: start: 20060602, end: 20061205

REACTIONS (3)
  - CHEST PAIN [None]
  - OEDEMA PERIPHERAL [None]
  - THROAT TIGHTNESS [None]
